FAERS Safety Report 24237151 (Version 2)
Quarter: 2024Q3

REPORT INFORMATION
  Report Type: Spontaneous
  Country: RS (occurrence: RS)
  Receive Date: 20240822
  Receipt Date: 20240906
  Transmission Date: 20241017
  Serious: Yes (Other)
  Sender: TEVA
  Company Number: RS-TEVA-VS-3234132

PATIENT
  Age: 60 Year
  Sex: Female

DRUGS (6)
  1. DOCETAXEL [Suspect]
     Active Substance: DOCETAXEL\DOCETAXEL ANHYDROUS
     Indication: Invasive ductal breast carcinoma
     Route: 042
  2. DOXORUBICIN [Concomitant]
     Active Substance: DOXORUBICIN
     Indication: Invasive ductal breast carcinoma
     Route: 042
  3. RIBOCICLIB [Suspect]
     Active Substance: RIBOCICLIB
     Indication: Hormone receptor positive breast cancer
     Route: 065
  4. CYCLOPHOSPHAMIDE [Concomitant]
     Active Substance: CYCLOPHOSPHAMIDE
     Indication: Invasive ductal breast carcinoma
     Route: 042
  5. ANASTROZOLE [Suspect]
     Active Substance: ANASTROZOLE
     Indication: Invasive ductal breast carcinoma
     Route: 065
  6. EXEMESTANE [Suspect]
     Active Substance: EXEMESTANE
     Indication: Hormone receptor positive breast cancer
     Route: 065

REACTIONS (2)
  - Drug ineffective [Unknown]
  - Rash macular [Unknown]
